FAERS Safety Report 16643618 (Version 2)
Quarter: 2019Q3

REPORT INFORMATION
  Report Type: Spontaneous
  Country: US (occurrence: US)
  Receive Date: 20190729
  Receipt Date: 20190819
  Transmission Date: 20191004
  Serious: No
  Sender: FDA-Public Use
  Company Number: US-PFIZER INC-2019325053

PATIENT
  Age: 76 Year
  Sex: Female
  Weight: 95.3 kg

DRUGS (3)
  1. LYRICA [Suspect]
     Active Substance: PREGABALIN
     Indication: SPINAL OSTEOARTHRITIS
     Dosage: 100 MG, 2X/DAY (TAKING TWO CAPSULES (100 MG TOTAL) TWICE DAILY)
     Dates: start: 20190813
  2. LYRICA [Suspect]
     Active Substance: PREGABALIN
     Indication: RADICULOPATHY
  3. ARTHROTEC [Concomitant]
     Active Substance: DICLOFENAC SODIUM\MISOPROSTOL
     Dosage: 1 DF (50-0.2 MG PER TABLET), DAILY
     Route: 048

REACTIONS (1)
  - Pain [Unknown]
